FAERS Safety Report 6934630-X (Version None)
Quarter: 2010Q3

REPORT INFORMATION
  Report Type: 
  Country: None (occurrence: None)
  Receive Date: 20100820
  Receipt Date: 20100812
  Transmission Date: 20110219
  Serious: Yes (Hospitalization)
  Sender: FDA-Public Use
  Company Number: DE-ABBOTT-10P-062-0663826-00

PATIENT
  Sex: Female

DRUGS (3)
  1. HUMIRA [Suspect]
     Indication: PSORIASIS
     Route: 058
     Dates: start: 20100301, end: 20100613
  2. HUMIRA [Suspect]
     Dates: start: 20100714
  3. THYRONAJOD [Concomitant]
     Indication: THYROID DISORDER

REACTIONS (5)
  - ABDOMINAL PAIN [None]
  - CHILLS [None]
  - DIVERTICULITIS [None]
  - PYREXIA [None]
  - URINARY TRACT INFECTION [None]
